FAERS Safety Report 8014685-4 (Version None)
Quarter: 2011Q4

REPORT INFORMATION
  Report Type: 
  Country: None (occurrence: None)
  Receive Date: 20111229
  Receipt Date: 20111220
  Transmission Date: 20120403
  Serious: Yes (Death, Hospitalization, Other)
  Sender: FDA-Public Use
  Company Number: JP-CELGENEUS-087-50794-11113108

PATIENT
  Sex: Female
  Weight: 61 kg

DRUGS (17)
  1. LEVOFLOXACIN [Concomitant]
     Dosage: 500 MILLIGRAM
     Route: 048
     Dates: end: 20111019
  2. MEROPENEM [Concomitant]
     Dosage: 1.5 GRAM
     Route: 041
     Dates: start: 20111020, end: 20111029
  3. VIDAZA [Suspect]
     Route: 065
     Dates: start: 20110905, end: 20110913
  4. PROMACTA [Concomitant]
     Dosage: 150 MILLIGRAM
     Route: 065
     Dates: end: 20111105
  5. AMBISOME [Concomitant]
     Dosage: 300 MILLIGRAM
     Route: 041
     Dates: start: 20111031, end: 20111106
  6. AMIKACIN [Concomitant]
     Dosage: 200 MILLIGRAM
     Route: 041
     Dates: start: 20111026, end: 20111106
  7. VIDAZA [Suspect]
     Dosage: 75 MILLIGRAM/SQ. METER
     Route: 041
     Dates: start: 20111003, end: 20111012
  8. ALFAROL [Concomitant]
     Dosage: .5 MICROGRAM
     Route: 048
     Dates: end: 20111105
  9. NEUTROGIN [Concomitant]
     Dosage: 100 MICROGRAM
     Route: 041
     Dates: start: 20111020, end: 20111026
  10. ITRACONAZOLE [Concomitant]
     Dosage: 100 MILLIGRAM
     Route: 048
  11. EXJADE [Concomitant]
     Dosage: 1000 MILLIGRAM
     Route: 065
     Dates: end: 20111105
  12. ALOXI [Concomitant]
     Dosage: .75 MICROGRAM
     Route: 041
     Dates: start: 20111003, end: 20111003
  13. NEUTROGIN [Concomitant]
     Dosage: 250 MICROGRAM
     Route: 041
     Dates: start: 20111027, end: 20111106
  14. AMBISOME [Concomitant]
     Dosage: 150 MILLIGRAM
     Route: 041
     Dates: start: 20111023, end: 20111030
  15. GLAKAY [Concomitant]
     Dosage: 45 MILLIGRAM
     Route: 048
     Dates: end: 20111105
  16. ALOXI [Concomitant]
     Dosage: .75 MICROGRAM
     Route: 041
     Dates: start: 20110905, end: 20110905
  17. MEROPENEM [Concomitant]
     Dosage: 3 GRAM
     Route: 041
     Dates: start: 20111030, end: 20111106

REACTIONS (3)
  - FEBRILE NEUTROPENIA [None]
  - PNEUMONIA FUNGAL [None]
  - THROMBOCYTOPENIA [None]
